FAERS Safety Report 21396162 (Version 1)
Quarter: 2022Q3

REPORT INFORMATION
  Report Type: Spontaneous
  Country: US (occurrence: US)
  Receive Date: 20220930
  Receipt Date: 20220930
  Transmission Date: 20221027
  Serious: No
  Sender: FDA-Public Use
  Company Number: US-PFIZER INC-202201191465

PATIENT
  Age: 44 Year
  Sex: Female

DRUGS (10)
  1. PAXLOVID [Suspect]
     Active Substance: NIRMATRELVIR\RITONAVIR
     Indication: COVID-19 treatment
     Dosage: UNK
     Dates: start: 20220916, end: 20220920
  2. COSENTYX [Concomitant]
     Active Substance: SECUKINUMAB
     Dosage: UNK
     Dates: end: 20220909
  3. METHOTREXATE [Concomitant]
     Active Substance: METHOTREXATE
     Dosage: UNK
     Dates: end: 20220906
  4. MELOXICAM [Concomitant]
     Active Substance: MELOXICAM
     Dosage: UNK
  5. LEXAPRO [Concomitant]
     Active Substance: ESCITALOPRAM OXALATE
     Dosage: UNK
  6. CABERGOLINE [Concomitant]
     Active Substance: CABERGOLINE
     Dosage: UNK
  7. ZYRTEC [Concomitant]
     Active Substance: CETIRIZINE HYDROCHLORIDE
     Dosage: UNK
  8. FLONASE [Concomitant]
     Active Substance: FLUTICASONE PROPIONATE
     Dosage: UNK
  9. FOLIC ACID [Concomitant]
     Active Substance: FOLIC ACID
     Dosage: UNK
  10. VITAMIN D NOS [Concomitant]
     Active Substance: VITAMIN D NOS
     Dosage: UNK

REACTIONS (7)
  - Therapeutic product effect incomplete [Unknown]
  - Dysgeusia [Unknown]
  - Dyspepsia [Unknown]
  - Insomnia [Unknown]
  - Gastrooesophageal reflux disease [Unknown]
  - Nasal congestion [Unknown]
  - Cough [Unknown]

NARRATIVE: CASE EVENT DATE: 20220924
